FAERS Safety Report 22085438 (Version 1)
Quarter: 2023Q1

REPORT INFORMATION
  Report Type: Report from Study
  Country: US (occurrence: US)
  Receive Date: 20230310
  Receipt Date: 20230310
  Transmission Date: 20230418
  Serious: Yes (Other)
  Sender: FDA-Public Use
  Company Number: US-MYLANLABS-2023M1025152

PATIENT
  Age: 84 Year
  Sex: Male
  Weight: 65.8 kg

DRUGS (9)
  1. SILDENAFIL [Suspect]
     Active Substance: SILDENAFIL
     Indication: Product used for unknown indication
     Dosage: UNK
     Route: 065
     Dates: end: 2023
  2. AMLODIPINE [Suspect]
     Active Substance: AMLODIPINE BESYLATE
     Indication: Product used for unknown indication
     Dosage: UNK
     Route: 065
     Dates: end: 2023
  3. TYVASO [Suspect]
     Active Substance: TREPROSTINIL
     Indication: Pulmonary arterial hypertension
     Dosage: 96 MICROGRAM, QID
  4. TYVASO [Suspect]
     Active Substance: TREPROSTINIL
     Dosage: 72 MICROGRAM, QID
  5. TYVASO [Suspect]
     Active Substance: TREPROSTINIL
     Dosage: 96 MICROGRAM, QID
  6. TYVASO [Suspect]
     Active Substance: TREPROSTINIL
     Dosage: UNK
     Dates: start: 20210209, end: 2023
  7. ORENITRAM [Suspect]
     Active Substance: TREPROSTINIL
     Indication: Pulmonary arterial hypertension
     Dosage: 0.5 MILLIGRAM, BID
     Route: 048
     Dates: start: 202301
  8. ORENITRAM [Suspect]
     Active Substance: TREPROSTINIL
     Dosage: 1 MILLIGRAM, BID
     Route: 048
  9. ORENITRAM [Suspect]
     Active Substance: TREPROSTINIL
     Dosage: UNK
     Route: 048
     Dates: start: 20230119

REACTIONS (13)
  - Hallucination [Unknown]
  - Constipation [Unknown]
  - Gait disturbance [Unknown]
  - Lethargy [Unknown]
  - Dyspnoea exertional [Unknown]
  - Oxygen saturation decreased [Unknown]
  - Hypersomnia [Unknown]
  - Muscle spasms [Unknown]
  - Nausea [Unknown]
  - Dyspnoea [Unknown]
  - Dizziness [Unknown]
  - Hypotension [Unknown]
  - Off label use [Unknown]

NARRATIVE: CASE EVENT DATE: 20230120
